FAERS Safety Report 6807003-8 (Version None)
Quarter: 2010Q2

REPORT INFORMATION
  Report Type: 
  Country: None (occurrence: None)
  Receive Date: 20100628
  Receipt Date: 20100628
  Transmission Date: 20101027
  Serious: Yes (Hospitalization)
  Sender: FDA-Public Use
  Company Number: None

PATIENT
  Sex: Female
  Weight: 57 kg

DRUGS (10)
  1. SUTENT [Suspect]
     Indication: METASTATIC RENAL CELL CARCINOMA
     Dosage: 37.5 MG QD PO
     Route: 048
     Dates: start: 20100521, end: 20100611
  2. SUTENT [Suspect]
  3. FLOUROLTHYMADINE [Suspect]
     Indication: INVESTIGATION
     Dosage: 5 MCI USED TWICE IV
     Route: 042
     Dates: start: 20100521
  4. FLOUROLTHYMADINE [Suspect]
     Indication: INVESTIGATION
     Dosage: 5 MCI USED TWICE IV
     Route: 042
     Dates: start: 20100611
  5. LESCOL [Concomitant]
  6. LEVOTHYROXINE SODIUM [Concomitant]
  7. TRIAMTERENE AND HYDROCHLOROTHIAZIDE [Concomitant]
  8. CALCIUM CARBONATE [Concomitant]
  9. VITAMIN D [Concomitant]
  10. OMEPRAZOLE [Concomitant]

REACTIONS (13)
  - DEHYDRATION [None]
  - DIZZINESS POSTURAL [None]
  - FATIGUE [None]
  - FEELING COLD [None]
  - HYPONATRAEMIA [None]
  - HYPOPHAGIA [None]
  - INAPPROPRIATE ANTIDIURETIC HORMONE SECRETION [None]
  - LYMPHOPENIA [None]
  - NAUSEA [None]
  - RENAL IMPAIRMENT [None]
  - RETCHING [None]
  - THROMBOCYTOPENIA [None]
  - URINARY TRACT INFECTION [None]
